FAERS Safety Report 5574032-4 (Version None)
Quarter: 2007Q4

REPORT INFORMATION
  Report Type: 
  Country: None (occurrence: None)
  Receive Date: 20071221
  Receipt Date: 20071214
  Transmission Date: 20080405
  Serious: Yes (Other)
  Sender: FDA-Public Use
  Company Number: 2007BI019059

PATIENT
  Age: 39 Year
  Sex: Male

DRUGS (2)
  1. NATALIZUMAB             (NATALIZUMAB) [Suspect]
     Indication: MULTIPLE SCLEROSIS
     Dosage: 300 MG,QM;IV; 300 MG, QM; IV
     Route: 030
     Dates: start: 20070301, end: 20070620
  2. NATALIZUMAB             (NATALIZUMAB) [Suspect]
     Indication: MULTIPLE SCLEROSIS
     Dosage: 300 MG,QM;IV; 300 MG, QM; IV
     Route: 030
     Dates: start: 20071213

REACTIONS (5)
  - ARTHRITIS [None]
  - BODY TEMPERATURE INCREASED [None]
  - PAIN [None]
  - SARCOIDOSIS [None]
  - SWELLING [None]
